FAERS Safety Report 6109479-0 (Version None)
Quarter: 2009Q1

REPORT INFORMATION
  Report Type: 
  Country: None (occurrence: None)
  Receive Date: 20090310
  Receipt Date: 20090303
  Transmission Date: 20090719
  Serious: Yes (Hospitalization)
  Sender: FDA-Public Use
  Company Number: US-BAYER-200910425BCC

PATIENT
  Age: 50 Year
  Sex: Female
  Weight: 122 kg

DRUGS (3)
  1. ALKA SELTZER PLUS EFFERVESCENT COLD TABLETS [Suspect]
     Indication: SINUS CONGESTION
     Dosage: AS USED: 5 DF
     Dates: start: 19740101
  2. ALKA SELTZER PLUS EFFERVESCENT COLD TABLETS [Suspect]
     Dosage: AS USED: 5 DF
     Dates: start: 19770101, end: 19990101
  3. ASCORBIC ACID [Concomitant]
     Dates: start: 19770101

REACTIONS (7)
  - DYSPNOEA [None]
  - GAIT DISTURBANCE [None]
  - HAEMATOCHEZIA [None]
  - LIP DISCOLOURATION [None]
  - NAIL DISCOLOURATION [None]
  - ULCER HAEMORRHAGE [None]
  - YELLOW SKIN [None]
